FAERS Safety Report 5880352-6 (Version None)
Quarter: 2008Q3

REPORT INFORMATION
  Report Type: 
  Country: None (occurrence: None)
  Receive Date: 20080912
  Receipt Date: 20080901
  Transmission Date: 20090109
  Serious: Yes (Congenital Anomaly)
  Sender: FDA-Public Use
  Company Number: GB-PFIZER INC-2008075517

PATIENT
  Sex: Female
  Weight: 3.15 kg

DRUGS (4)
  1. PHENYTOIN [Suspect]
     Indication: EPILEPSY
     Route: 064
  2. VALPROATE SODIUM [Suspect]
     Indication: EPILEPSY
     Route: 064
  3. VIGABATRIN [Suspect]
     Indication: EPILEPSY
     Route: 064
     Dates: end: 19990715
  4. FOLIC ACID [Concomitant]
     Route: 064

REACTIONS (6)
  - CARDIAC SEPTAL DEFECT [None]
  - DRUG EXPOSURE DURING PREGNANCY [None]
  - DYSMORPHISM [None]
  - FOETAL ANTICONVULSANT SYNDROME [None]
  - HAEMANGIOMA [None]
  - SPEECH DISORDER DEVELOPMENTAL [None]
